FAERS Safety Report 4994157-1 (Version None)
Quarter: 2006Q2

REPORT INFORMATION
  Report Type: 
  Country: None (occurrence: None)
  Receive Date: 20060503
  Receipt Date: 20060421
  Transmission Date: 20061013
  Serious: Yes (Hospitalization)
  Sender: FDA-Public Use
  Company Number: 2003JP006494

PATIENT
  Age: 37 Year
  Sex: Female
  Weight: 43.8 kg

DRUGS (19)
  1. PROGRAF [Suspect]
     Indication: RENAL TRANSPLANT
     Dosage: 6 MG, BID, ORAL; 6 MG, UID/QD,ORAL; 6 MG, BID, ORAL; 4 MG, BID, ORAL
     Route: 048
     Dates: start: 20020704, end: 20020709
  2. PROGRAF [Suspect]
     Indication: RENAL TRANSPLANT
     Dosage: 6 MG, BID, ORAL; 6 MG, UID/QD,ORAL; 6 MG, BID, ORAL; 4 MG, BID, ORAL
     Route: 048
     Dates: start: 20020710, end: 20020710
  3. PROGRAF [Suspect]
     Indication: RENAL TRANSPLANT
     Dosage: 6 MG, BID, ORAL; 6 MG, UID/QD,ORAL; 6 MG, BID, ORAL; 4 MG, BID, ORAL
     Route: 048
     Dates: start: 20020715, end: 20020821
  4. PROGRAF [Suspect]
     Indication: RENAL TRANSPLANT
     Dosage: 6 MG, BID, ORAL; 6 MG, UID/QD,ORAL; 6 MG, BID, ORAL; 4 MG, BID, ORAL
     Route: 048
     Dates: start: 20020822
  5. PROGRAF [Suspect]
     Indication: RENAL TRANSPLANT
     Dosage: 4.5 MG, UID/QD, IV NOS; 3.6 MG, UID/QD, IV NOS; 20 MG, IV NOS
     Route: 042
     Dates: start: 20020710, end: 20020711
  6. PROGRAF [Suspect]
     Indication: RENAL TRANSPLANT
     Dosage: 4.5 MG, UID/QD, IV NOS; 3.6 MG, UID/QD, IV NOS; 20 MG, IV NOS
     Route: 042
     Dates: start: 20020712, end: 20020714
  7. PROGRAF [Suspect]
     Indication: RENAL TRANSPLANT
     Dosage: 4.5 MG, UID/QD, IV NOS; 3.6 MG, UID/QD, IV NOS; 20 MG, IV NOS
     Route: 042
     Dates: start: 20020714, end: 20020714
  8. SIMULECT [Suspect]
     Dosage: 20 MG, IV NOS
     Route: 042
     Dates: start: 20020710, end: 20020710
  9. SIMULECT [Suspect]
     Dosage: 20 MG, IV NOS
     Route: 042
     Dates: start: 20020714, end: 20020714
  10. PREDNISOLONE [Suspect]
     Dosage: 5-50 MG
     Dates: start: 20020708
  11. CELLCEPT [Suspect]
     Dosage: 1500.00 MG, ORAL
     Route: 048
     Dates: start: 20020701
  12. NEORAL [Concomitant]
  13. SODIUM PHOSPHATE DIBASIC  (SODIUM PHOSPHATE DIBASIC) [Concomitant]
  14. SULFAMETHOXAZOLE + TRIMETHOPRIM [Concomitant]
  15. SALOBEL [Concomitant]
  16. GASTER [Concomitant]
  17. GALSAN [Concomitant]
  18. ALFAROL (ALFACALCIDOL) [Concomitant]
  19. ROCALTROL [Concomitant]

REACTIONS (4)
  - CYTOMEGALOVIRUS INFECTION [None]
  - HYPOPHOSPHATAEMIA [None]
  - PSEUDOMONAS INFECTION [None]
  - PYELONEPHRITIS [None]
